FAERS Safety Report 11544762 (Version 2)
Quarter: 2015Q4

REPORT INFORMATION
  Report Type: Spontaneous
  Country: US (occurrence: US)
  Receive Date: 20150924
  Receipt Date: 20151020
  Transmission Date: 20160304
  Serious: No
  Sender: FDA-Public Use
  Company Number: US-BAYER-2015-425628

PATIENT
  Age: 26 Year
  Sex: Female
  Weight: 114.74 kg

DRUGS (1)
  1. MIRENA [Suspect]
     Active Substance: LEVONORGESTREL
     Indication: CONTRACEPTION
     Dosage: 20 MCG/24HR, CONT
     Route: 015
     Dates: start: 20141231, end: 20150916

REACTIONS (1)
  - Device expulsion [None]

NARRATIVE: CASE EVENT DATE: 20150916
